FAERS Safety Report 7052198-7 (Version None)
Quarter: 2010Q4

REPORT INFORMATION
  Report Type: 
  Country: None (occurrence: None)
  Receive Date: 20101018
  Receipt Date: 20101018
  Transmission Date: 20110411
  Serious: Yes (Life-Threatening, Hospitalization)
  Sender: FDA-Public Use
  Company Number: None

PATIENT
  Age: 27 Year
  Sex: Female
  Weight: 65.5 kg

DRUGS (1)
  1. DEPO-PROVERA [Suspect]

REACTIONS (1)
  - PULMONARY EMBOLISM [None]
